FAERS Safety Report 10262525 (Version 1)
Quarter: 2014Q2

REPORT INFORMATION
  Report Type: Spontaneous
  Country: IT (occurrence: IT)
  Receive Date: 20140626
  Receipt Date: 20140626
  Transmission Date: 20141212
  Serious: Yes (Hospitalization)
  Sender: FDA-Public Use
  Company Number: IT-ACTAVIS-2014-13604

PATIENT
  Age: 59 Year
  Sex: Male

DRUGS (8)
  1. IRINOTECAN (UNKNOWN) [Suspect]
     Indication: RECTAL CANCER
     Dosage: 340 MG/M2, CYCLICAL
     Route: 041
     Dates: start: 20140122, end: 20140305
  2. FLUOROURACIL [Suspect]
     Indication: RECTAL CANCER
     Dosage: 760 MG/M2, CYCLICAL
     Route: 041
     Dates: start: 20140122, end: 20140305
  3. LEDERFOLIN [Suspect]
     Indication: RECTAL CANCER
     Dosage: 380 MG/M2, CYCLICAL
     Route: 048
     Dates: start: 20140122, end: 20140305
  4. DEXAMETHASONE PHOSPHATE [Concomitant]
     Indication: PRODUCT USED FOR UNKNOWN INDICATION
     Dosage: UNK
     Route: 041
     Dates: start: 20140122, end: 20140305
  5. ALOXI [Concomitant]
     Indication: PRODUCT USED FOR UNKNOWN INDICATION
     Dosage: UNK
     Route: 041
     Dates: start: 20140122, end: 20140305
  6. DELTACORTENE [Concomitant]
     Indication: PRODUCT USED FOR UNKNOWN INDICATION
     Dosage: UNK
     Route: 048
     Dates: start: 20140122, end: 20140305
  7. ATROPINE SULFATE [Concomitant]
     Indication: PRODUCT USED FOR UNKNOWN INDICATION
     Dosage: UNK
     Route: 041
     Dates: start: 20140122, end: 20140305
  8. PANTOPRAZOLE [Concomitant]
     Indication: PRODUCT USED FOR UNKNOWN INDICATION
     Dosage: UNK
     Route: 048
     Dates: start: 20140122, end: 20140305

REACTIONS (1)
  - Colitis [Recovered/Resolved with Sequelae]
